FAERS Safety Report 7778143-4 (Version None)
Quarter: 2011Q3

REPORT INFORMATION
  Report Type: 
  Country: None (occurrence: None)
  Receive Date: 20110926
  Receipt Date: 20110111
  Transmission Date: 20111222
  Serious: No
  Sender: FDA-Public Use
  Company Number: US-MUTUAL PHARMACEUTICAL COMPANY, INC.-BCTM20110001

PATIENT
  Age: 70 Year
  Sex: Female
  Weight: 56.296 kg

DRUGS (5)
  1. BACTRIM [Suspect]
     Indication: URINARY TRACT INFECTION
     Route: 048
     Dates: start: 20101220, end: 20101230
  2. ZANTAC [Concomitant]
     Indication: GASTROOESOPHAGEAL REFLUX DISEASE
     Route: 048
  3. TYLENOL-500 [Concomitant]
     Indication: ARTHRITIS
     Route: 048
  4. CALCIUM CARBONATE [Concomitant]
     Indication: SUPPLEMENTATION THERAPY
     Route: 048
  5. NIFEDIPINE [Suspect]
     Indication: HYPERTENSION
     Route: 048
     Dates: start: 20101201, end: 20110106

REACTIONS (6)
  - EAR DISCOMFORT [None]
  - TREMOR [None]
  - ABDOMINAL DISTENSION [None]
  - ASTHENIA [None]
  - NAUSEA [None]
  - HEADACHE [None]
